FAERS Safety Report 19889319 (Version 1)
Quarter: 2021Q3

REPORT INFORMATION
  Report Type: Spontaneous
  Country: CA (occurrence: CA)
  Receive Date: 20210927
  Receipt Date: 20210927
  Transmission Date: 20211014
  Serious: Yes (Hospitalization, Other)
  Sender: FDA-Public Use
  Company Number: CA-TEVA-2021-CA-1957267

PATIENT
  Sex: Male

DRUGS (6)
  1. CICLESONIDE [Suspect]
     Active Substance: CICLESONIDE
     Indication: PRODUCT USED FOR UNKNOWN INDICATION
     Route: 065
  2. FLUTICASONE PROPIONATE/SALMETEROL XINAFOATE [Suspect]
     Active Substance: FLUTICASONE PROPIONATE\SALMETEROL XINAFOATE
     Indication: PRODUCT USED FOR UNKNOWN INDICATION
     Route: 065
  3. MAGNESIUM SULFATE. [Suspect]
     Active Substance: MAGNESIUM SULFATE
     Indication: PRODUCT USED FOR UNKNOWN INDICATION
     Route: 065
  4. BUDESONIDE/FORMOTEROL FUMARATE [Suspect]
     Active Substance: BUDESONIDE\FORMOTEROL FUMARATE
     Indication: PRODUCT USED FOR UNKNOWN INDICATION
     Route: 055
  5. HYDROCORTISONE. [Suspect]
     Active Substance: HYDROCORTISONE
     Indication: PRODUCT USED FOR UNKNOWN INDICATION
     Route: 065
  6. LANSOPRAZOLE. [Suspect]
     Active Substance: LANSOPRAZOLE
     Indication: PRODUCT USED FOR UNKNOWN INDICATION
     Route: 065

REACTIONS (23)
  - Lip swelling [Recovered/Resolved]
  - Skin lesion [Recovered/Resolved]
  - Asthma [Recovered/Resolved]
  - Sleep disorder due to a general medical condition [Recovered/Resolved]
  - Disease recurrence [Recovered/Resolved]
  - Respiratory arrest [Recovered/Resolved]
  - Dyspnoea [Recovered/Resolved]
  - Loss of personal independence in daily activities [Recovered/Resolved]
  - Wheezing [Recovered/Resolved]
  - Bronchiectasis [Recovered/Resolved]
  - Eczema [Recovered/Resolved]
  - Respiratory disorder [Recovered/Resolved]
  - Urticaria [Recovered/Resolved]
  - Adrenal suppression [Recovered/Resolved]
  - Angioedema [Recovered/Resolved]
  - Back pain [Recovered/Resolved]
  - Erythema [Recovered/Resolved]
  - Gingival disorder [Recovered/Resolved]
  - Oral disorder [Recovered/Resolved]
  - Rash [Recovered/Resolved]
  - Therapeutic product effect incomplete [Recovered/Resolved]
  - Adrenal insufficiency [Recovered/Resolved]
  - Skin irritation [Recovered/Resolved]
